FAERS Safety Report 7989450-4 (Version None)
Quarter: 2011Q4

REPORT INFORMATION
  Report Type: 
  Country: None (occurrence: None)
  Receive Date: 20111219
  Receipt Date: 20111213
  Transmission Date: 20120403
  Serious: Yes (Other)
  Sender: FDA-Public Use
  Company Number: US-JNJFOC-20111011272

PATIENT
  Age: 45 Year
  Sex: Male
  Weight: 90.72 kg

DRUGS (8)
  1. BUSPAR [Concomitant]
     Indication: BIPOLAR DISORDER
     Dosage: 1 TAB THREE TIMES PER DAY
     Route: 065
     Dates: start: 19960101
  2. DEPAKOTE ER [Concomitant]
     Indication: BIPOLAR DISORDER
     Route: 065
     Dates: start: 19960101
  3. IBUPROFEN [Concomitant]
     Indication: PAIN
     Dosage: AS NEEDED
     Route: 065
     Dates: start: 20090101
  4. VITAMIN/MINERALS [Concomitant]
     Indication: ROUTINE HEALTH MAINTENANCE
     Dosage: DAILY, FOR YEARS
     Route: 065
  5. BENGAY ULTRA STRENGTH 4 OZ TUBE [Suspect]
     Indication: ARTHRALGIA
     Dosage: SMALL AMOUNT; 5-6 TIMES
     Route: 061
  6. CLONAZEPAM [Concomitant]
     Indication: ANXIETY
     Dosage: THREE TIMES DAILY
     Route: 065
     Dates: start: 20090101
  7. CLONAZEPAM [Concomitant]
     Indication: BIPOLAR DISORDER
     Dosage: THREE TIMES DAILY
     Route: 065
     Dates: start: 20090101
  8. HYDROCODONE [Concomitant]
     Indication: PAIN
     Dosage: 5/500 MG, AS NEEDED
     Route: 065
     Dates: start: 20090101

REACTIONS (5)
  - PAIN [None]
  - RASH [None]
  - APPLICATION SITE VESICLES [None]
  - APPLICATION SITE BURN [None]
  - APPLICATION SITE SCAB [None]
